FAERS Safety Report 14757158 (Version 5)
Quarter: 2018Q2

REPORT INFORMATION
  Report Type: Report from Study
  Country: US (occurrence: US)
  Receive Date: 20180413
  Receipt Date: 20180623
  Transmission Date: 20180711
  Serious: Yes (Other)
  Sender: FDA-Public Use
  Company Number: PHEH2018US014256

PATIENT
  Sex: Female

DRUGS (1)
  1. COSENTYX [Suspect]
     Active Substance: SECUKINUMAB
     Indication: PRODUCT USED FOR UNKNOWN INDICATION
     Route: 065

REACTIONS (13)
  - Gait disturbance [Not Recovered/Not Resolved]
  - Drug ineffective [Unknown]
  - Depressed mood [Unknown]
  - Oropharyngeal pain [Unknown]
  - Ankylosing spondylitis [Unknown]
  - Pain [Unknown]
  - Loss of consciousness [Unknown]
  - Arthropathy [Unknown]
  - Injection site injury [Unknown]
  - Blood pressure increased [Unknown]
  - Epistaxis [Unknown]
  - Device issue [Unknown]
  - Nasopharyngitis [Unknown]
